FAERS Safety Report 9807974 (Version 1)
Quarter: 2014Q1

REPORT INFORMATION
  Report Type: Spontaneous
  Country: GB (occurrence: None)
  Receive Date: 20140108
  Receipt Date: 20140108
  Transmission Date: 20141002
  Serious: Yes (Hospitalization)
  Sender: FDA-Public Use
  Company Number: 2109140

PATIENT
  Sex: Male

DRUGS (2)
  1. DEFEROXAMINE MESYLATE [Suspect]
     Indication: PRODUCT USED FOR UNKNOWN INDICATION
     Dosage: 3 G GRAM(S), UNKNOWN, SUBCUTANEOUS
     Dates: start: 20131014
  2. SODIUM CHLORIDE [Suspect]
     Indication: PRODUCT USED FOR UNKNOWN INDICATION
     Route: 058
     Dates: start: 20131014

REACTIONS (2)
  - Dehydration [None]
  - Body temperature increased [None]
